FAERS Safety Report 5786297-4 (Version None)
Quarter: 2008Q2

REPORT INFORMATION
  Report Type: 
  Country: None (occurrence: None)
  Receive Date: 20080619
  Receipt Date: 20080527
  Transmission Date: 20081010
  Serious: Yes (Hospitalization)
  Sender: FDA-Public Use
  Company Number: 2008S1009385

PATIENT
  Age: 82 Year
  Sex: Male

DRUGS (8)
  1. INDAPAMIDE [Suspect]
     Indication: HYPERTENSION
     Dosage: 2.5 MG
     Dates: start: 19960101, end: 20080421
  2. MIRTAZAPINE [Suspect]
     Indication: DEPRESSION
     Dates: start: 20080403, end: 20080418
  3. ASPIRIN [Concomitant]
  4. ATORVASTATIN CALCIUM [Concomitant]
  5. CLOPIDOGREL [Concomitant]
  6. LATANOPROST [Concomitant]
  7. LOSARTAN POTASSIUM [Concomitant]
  8. TEMAZEPAM [Concomitant]

REACTIONS (5)
  - AGITATION [None]
  - CONFUSIONAL STATE [None]
  - EPILEPSY [None]
  - HYPOKALAEMIA [None]
  - HYPONATRAEMIA [None]
